FAERS Safety Report 9744581 (Version 2)
Quarter: 2013Q4

REPORT INFORMATION
  Report Type: Spontaneous
  Country: ES (occurrence: ES)
  Receive Date: 20131210
  Receipt Date: 20131223
  Transmission Date: 20140711
  Serious: Yes (Hospitalization)
  Sender: FDA-Public Use
  Company Number: ES-ACORDA-ACO_100761_2013

PATIENT
  Sex: Female

DRUGS (3)
  1. FAMPYRA [Suspect]
     Indication: GAIT DISTURBANCE
     Dosage: UNK, BID
     Route: 048
     Dates: start: 20130926
  2. INTERFERON BETA 1B [Concomitant]
     Indication: PRODUCT USED FOR UNKNOWN INDICATION
     Route: 065
  3. AMANTADINE [Concomitant]
     Indication: PRODUCT USED FOR UNKNOWN INDICATION
     Route: 065

REACTIONS (1)
  - Atrial fibrillation [Unknown]
